FAERS Safety Report 9164664 (Version 1)
Quarter: 2013Q1

REPORT INFORMATION
  Report Type: Spontaneous
  Country: JP (occurrence: None)
  Receive Date: 20130226
  Receipt Date: 20130226
  Transmission Date: 20140127
  Serious: No
  Sender: FDA-Public Use
  Company Number: SPI201300130

PATIENT
  Age: 88 Year
  Sex: Male

DRUGS (4)
  1. AMITIZA (LUBIPROSTONE) CAPSULE, 24MCG [Suspect]
     Route: 048
     Dates: start: 20130122, end: 20130130
  2. BAYASPIRIN (ACETYLSALICYLIC ACID) [Concomitant]
  3. AMLODIPINE (AMLODIPINE BESILATE) [Concomitant]
  4. FUROSEMIDE (FUROSEMIDE) [Concomitant]

REACTIONS (2)
  - Dyspnoea [None]
  - Drug ineffective [None]
